FAERS Safety Report 18217526 (Version 3)
Quarter: 2020Q3

REPORT INFORMATION
  Report Type: Report from Study
  Country: FR (occurrence: FR)
  Receive Date: 20200901
  Receipt Date: 20200930
  Transmission Date: 20201103
  Serious: Yes (Hospitalization, Other)
  Sender: FDA-Public Use
  Company Number: FR-BRISTOL-MYERS SQUIBB COMPANY-BMS-2020-032209

PATIENT
  Age: 75 Year
  Sex: Male
  Weight: 75 kg

DRUGS (2)
  1. FLUDEX [INDAPAMIDE] [Concomitant]
     Active Substance: INDAPAMIDE
     Indication: HYPERTENSION
     Dosage: UNK
     Route: 048
  2. APIXABAN [Suspect]
     Active Substance: APIXABAN
     Indication: EMBOLISM VENOUS
     Dosage: 5 MG TWICE A DAY OR 2.5  MG TWICE A DAY ACCORDING TO THE RANDOMIZATION
     Route: 048
     Dates: start: 20191122, end: 20200724

REACTIONS (2)
  - Anaemia [Not Recovered/Not Resolved]
  - Malignant neoplasm progression [Unknown]

NARRATIVE: CASE EVENT DATE: 20200401
